FAERS Safety Report 16737989 (Version 1)
Quarter: 2019Q3

REPORT INFORMATION
  Report Type: Spontaneous
  Country: JP (occurrence: JP)
  Receive Date: 20190824
  Receipt Date: 20190824
  Transmission Date: 20191005
  Serious: Yes (Hospitalization)
  Sender: FDA-Public Use
  Company Number: JP-009507513-1907JPN000355J

PATIENT
  Age: 82 Year
  Sex: Male
  Weight: 54 kg

DRUGS (9)
  1. BELSOMRA [Suspect]
     Active Substance: SUVOREXANT
     Indication: RESTLESSNESS
  2. LUNESTA [Suspect]
     Active Substance: ESZOPICLONE
     Indication: RESTLESSNESS
  3. RISPERIDONE. [Suspect]
     Active Substance: RISPERIDONE
     Indication: RESTLESSNESS
  4. LUNESTA [Suspect]
     Active Substance: ESZOPICLONE
     Indication: INSOMNIA
     Dosage: 1 MILLIGRAM, QD
     Route: 048
     Dates: end: 20180719
  5. AMITIZA [Concomitant]
     Active Substance: LUBIPROSTONE
     Indication: CONSTIPATION
     Dosage: 24 MICROGRAM, BID
     Route: 048
  6. BELSOMRA [Suspect]
     Active Substance: SUVOREXANT
     Indication: INSOMNIA
     Dosage: 15 MILLIGRAM, QD
     Route: 048
     Dates: start: 20180719, end: 20180719
  7. LUNESTA [Suspect]
     Active Substance: ESZOPICLONE
     Indication: SOLILOQUY
  8. RISPERIDONE. [Suspect]
     Active Substance: RISPERIDONE
     Indication: INSOMNIA
     Dosage: 1 MILLIGRAM, QD
     Route: 048
     Dates: end: 20180719
  9. RISPERIDONE. [Suspect]
     Active Substance: RISPERIDONE
     Indication: SOLILOQUY

REACTIONS (3)
  - Nerve injury [Recovered/Resolved]
  - Sedation complication [Recovered/Resolved]
  - Off label use [Unknown]

NARRATIVE: CASE EVENT DATE: 20180720
